FAERS Safety Report 18710775 (Version 3)
Quarter: 2021Q1

REPORT INFORMATION
  Report Type: Report from Study
  Country: US (occurrence: US)
  Receive Date: 20210107
  Receipt Date: 20210120
  Transmission Date: 20210419
  Serious: Yes (Disabling)
  Sender: FDA-Public Use
  Company Number: US-KYOWAKIRIN-2020BKK022937

PATIENT

DRUGS (2)
  1. CRYSVITA [Suspect]
     Active Substance: BUROSUMAB-TWZA
     Dosage: 90 MG, 1X/4 WEEKS
     Route: 058
     Dates: start: 20190120, end: 2020
  2. CRYSVITA [Suspect]
     Active Substance: BUROSUMAB-TWZA
     Indication: HEREDITARY HYPOPHOSPHATAEMIC RICKETS
     Dosage: 90 MG, 1X/4 WEEKS
     Route: 058
     Dates: start: 2020

REACTIONS (3)
  - Laboratory test abnormal [Unknown]
  - Restless legs syndrome [Not Recovered/Not Resolved]
  - Adverse drug reaction [Unknown]
